FAERS Safety Report 10986082 (Version 1)
Quarter: 2015Q2

REPORT INFORMATION
  Report Type: Spontaneous
  Country: US (occurrence: None)
  Receive Date: 20150403
  Receipt Date: 20150403
  Transmission Date: 20150821
  Serious: Yes (Other)
  Sender: FDA-Public Use
  Company Number: None

PATIENT
  Age: 55 Year
  Sex: Female
  Weight: 113.4 kg

DRUGS (7)
  1. ONDANSETRON. [Suspect]
     Active Substance: ONDANSETRON
     Indication: VOMITING
     Dosage: 1 TABLET, TAKEN UNDER THE TONGUE
     Dates: start: 20150401, end: 20150402
  2. TYLENOL [Concomitant]
     Active Substance: ACETAMINOPHEN
  3. ALBUTEROL. [Concomitant]
     Active Substance: ALBUTEROL
  4. ONDANSETRON. [Suspect]
     Active Substance: ONDANSETRON
     Indication: NAUSEA
     Dosage: 1 TABLET, TAKEN UNDER THE TONGUE
     Dates: start: 20150401, end: 20150402
  5. CELEBREX [Concomitant]
     Active Substance: CELECOXIB
  6. ZOLOFT [Concomitant]
     Active Substance: SERTRALINE HYDROCHLORIDE
  7. SYMBICORT [Concomitant]
     Active Substance: BUDESONIDE\FORMOTEROL FUMARATE DIHYDRATE

REACTIONS (4)
  - Headache [None]
  - Product solubility abnormal [None]
  - Product taste abnormal [None]
  - Inadequate analgesia [None]

NARRATIVE: CASE EVENT DATE: 20150401
